FAERS Safety Report 15188836 (Version 1)
Quarter: 2018Q3

REPORT INFORMATION
  Report Type: Spontaneous
  Country: US (occurrence: US)
  Receive Date: 20180625
  Receipt Date: 20180625
  Transmission Date: 20181010
  Serious: Yes (Hospitalization)
  Sender: FDA-Public Use
  Company Number: None

PATIENT
  Age: 52 Year
  Sex: Female

DRUGS (1)
  1. COSENTYX [Suspect]
     Active Substance: SECUKINUMAB
     Indication: ANKYLOSING SPONDYLITIS
     Route: 058
     Dates: start: 20171218

REACTIONS (5)
  - Neck pain [None]
  - Musculoskeletal pain [None]
  - Arthralgia [None]
  - Pain in extremity [None]
  - Hypoaesthesia [None]

NARRATIVE: CASE EVENT DATE: 20180617
